FAERS Safety Report 7642576-7 (Version None)
Quarter: 2011Q3

REPORT INFORMATION
  Report Type: 
  Country: None (occurrence: None)
  Receive Date: 20110728
  Receipt Date: 20110721
  Transmission Date: 20111222
  Serious: Yes (Hospitalization)
  Sender: FDA-Public Use
  Company Number: US-BAYER-201039179NA

PATIENT
  Age: 40 Year
  Sex: Female
  Weight: 73.469 kg

DRUGS (9)
  1. HYDROCODONE BITARTRATE AND ACETAMINOPHEN [Concomitant]
  2. YASMIN [Suspect]
     Indication: MENOPAUSAL SYMPTOMS
  3. IBUPROFEN [Concomitant]
     Dosage: 800 MG, UNK
  4. CODEINE W/GUAIFENESIN [Concomitant]
     Indication: BRONCHITIS
  5. BENZONATATE [Concomitant]
     Dosage: 100 MG, UNK
  6. YASMIN [Suspect]
     Indication: PRODUCT USED FOR UNKNOWN INDICATION
     Dosage: UNK
     Route: 048
     Dates: start: 20070601, end: 20070101
  7. AZITHROMYCIN [Concomitant]
     Indication: BRONCHITIS
  8. FAMOTIDINE [Concomitant]
     Dosage: 40 MG, UNK
  9. ONDANSETRON [Concomitant]
     Dosage: 4 MG, UNK

REACTIONS (3)
  - CEREBROVASCULAR ACCIDENT [None]
  - DEEP VEIN THROMBOSIS [None]
  - PULMONARY EMBOLISM [None]
